FAERS Safety Report 8254998-4 (Version None)
Quarter: 2012Q1

REPORT INFORMATION
  Report Type: 
  Country: None (occurrence: None)
  Receive Date: 20120329
  Receipt Date: 20120314
  Transmission Date: 20120608
  Serious: Yes (Hospitalization)
  Sender: FDA-Public Use
  Company Number: A0966393A

PATIENT
  Age: 16 Year
  Sex: Male
  Weight: 71.9 kg

DRUGS (2)
  1. CEFTAZIDIME SODIUM [Suspect]
     Indication: BRONCHITIS
     Dosage: 1.6 GRAM(S)
     Dates: start: 20120217, end: 20120217
  2. CEFTRIAXONE SODIUM [Concomitant]

REACTIONS (3)
  - INFUSION SITE EXTRAVASATION [None]
  - OEDEMA PERIPHERAL [None]
  - DERMATITIS BULLOUS [None]
